FAERS Safety Report 12961322 (Version 2)
Quarter: 2016Q4

REPORT INFORMATION
  Report Type: Spontaneous
  Country: US (occurrence: US)
  Receive Date: 20161121
  Receipt Date: 20161130
  Transmission Date: 20170207
  Serious: Yes (Hospitalization, Other)
  Sender: FDA-Public Use
  Company Number: US-PFIZER INC-2016536306

PATIENT
  Age: 68 Year
  Sex: Female

DRUGS (3)
  1. METRONIDAZOLE. [Concomitant]
     Active Substance: METRONIDAZOLE
     Indication: DIVERTICULITIS
     Dosage: UNK
  2. CIPROFLOXACIN. [Concomitant]
     Active Substance: CIPROFLOXACIN
     Indication: DIVERTICULITIS
     Dosage: UNK
  3. SULFAMETHOXAZOLE/TRIMETHOPRIM [Suspect]
     Active Substance: SULFAMETHOXAZOLE\TRIMETHOPRIM
     Indication: DIVERTICULITIS
     Dosage: UNK

REACTIONS (8)
  - Meningitis aseptic [Recovering/Resolving]
  - Cholestatic liver injury [Unknown]
  - Hepatotoxicity [None]
  - Rash maculo-papular [Unknown]
  - Thrombocytopenia [Unknown]
  - Sepsis [None]
  - Toxicity to various agents [Unknown]
  - Neutropenia [Recovered/Resolved]
